FAERS Safety Report 9340944 (Version 2)
Quarter: 2013Q4

REPORT INFORMATION
  Report Type: Spontaneous
  Country: US (occurrence: US)
  Receive Date: 20130610
  Receipt Date: 20131119
  Transmission Date: 20140711
  Serious: Yes (Hospitalization)
  Sender: FDA-Public Use
  Company Number: US-B.I. PHARMACEUTICALS,INC./RIDGEFIELD-2013-BI-15922BP

PATIENT
  Age: 65 Year
  Sex: Male
  Weight: 104.33 kg

DRUGS (12)
  1. PRADAXA [Suspect]
     Indication: ANTICOAGULANT THERAPY
     Dosage: 300 MG
     Dates: start: 20101118, end: 20101129
  2. TRIAMTERENE [Concomitant]
     Dates: start: 200508
  3. NEURONTIN [Concomitant]
     Dates: start: 201005
  4. HYDROCODONE [Concomitant]
     Dates: start: 201005, end: 201109
  5. SYNTHROID [Concomitant]
     Dates: start: 201008
  6. MAGNESIUM [Concomitant]
     Dates: start: 201005, end: 201101
  7. NORVASC [Concomitant]
  8. LISINOPRIL [Concomitant]
  9. CORVITE [Concomitant]
  10. RYTHMOL [Concomitant]
     Dates: start: 2007
  11. OMEGA 3 [Concomitant]
  12. VITAMIN D3 [Concomitant]

REACTIONS (6)
  - Pericardial effusion [Unknown]
  - Cardiac tamponade [Unknown]
  - Lower gastrointestinal haemorrhage [Unknown]
  - Post procedural haemorrhage [Unknown]
  - Coagulopathy [Unknown]
  - Anaemia [Unknown]
